FAERS Safety Report 11250662 (Version 1)
Quarter: 2015Q3

REPORT INFORMATION
  Report Type: Spontaneous
  Country: US (occurrence: US)
  Receive Date: 20150708
  Receipt Date: 20150708
  Transmission Date: 20151125
  Serious: No
  Sender: FDA-Public Use
  Company Number: US-ELI_LILLY_AND_COMPANY-US201103002948

PATIENT
  Age: 91 Year
  Sex: Female

DRUGS (1)
  1. ALIMTA [Suspect]
     Active Substance: PEMETREXED DISODIUM
     Indication: LUNG NEOPLASM MALIGNANT
     Dosage: UNK, 3/W
     Route: 065

REACTIONS (5)
  - Decreased appetite [Unknown]
  - White blood cell count decreased [Unknown]
  - Fatigue [Unknown]
  - Feeling abnormal [Unknown]
  - Dehydration [Unknown]
